FAERS Safety Report 15984647 (Version 1)
Quarter: 2019Q1

REPORT INFORMATION
  Report Type: Spontaneous
  Country: US (occurrence: US)
  Receive Date: 20190128
  Receipt Date: 20190128
  Transmission Date: 20190418
  Serious: No
  Sender: FDA-Public Use
  Company Number: None

PATIENT
  Age: 31 Year
  Sex: Female

DRUGS (1)
  1. STELARA [Suspect]
     Active Substance: USTEKINUMAB
     Indication: PSORIASIS
     Dosage: ?          OTHER FREQUENCY:EVERY 12 WKS;?
     Route: 058
     Dates: start: 20180523

REACTIONS (2)
  - Maternal exposure timing unspecified [None]
  - Pregnancy [None]

NARRATIVE: CASE EVENT DATE: 20190125
